FAERS Safety Report 12647013 (Version 1)
Quarter: 2016Q3

REPORT INFORMATION
  Report Type: Spontaneous
  Country: US (occurrence: None)
  Receive Date: 20160811
  Receipt Date: 20160811
  Transmission Date: 20161109
  Serious: Yes (Disabling)
  Sender: FDA-Public Use
  Company Number: None

PATIENT
  Age: 30 Year
  Sex: Female
  Weight: 68.04 kg

DRUGS (1)
  1. MIRENA [Suspect]
     Active Substance: LEVONORGESTREL

REACTIONS (11)
  - Feeling abnormal [None]
  - Chest discomfort [None]
  - Palpitations [None]
  - Dyspnoea [None]
  - Anxiety [None]
  - Sleep terror [None]
  - Chest pain [None]
  - Fatigue [None]
  - Vaginal disorder [None]
  - Adverse food reaction [None]
  - Nephrolithiasis [None]

NARRATIVE: CASE EVENT DATE: 20160803
